FAERS Safety Report 4340239-7 (Version None)
Quarter: 2004Q1

REPORT INFORMATION
  Report Type: 
  Country: None (occurrence: None)
  Receive Date: 20040329
  Receipt Date: 20031229
  Transmission Date: 20041129
  Serious: No
  Sender: FDA-Public Use
  Company Number: 04P-163-0246140-00

PATIENT
  Age: 51 Year
  Sex: Female

DRUGS (7)
  1. HUMIRA [Suspect]
     Indication: RHEUMATOID ARTHRITIS
     Dosage: 40 MG, 1 IN 2 WK, SUBCUTANEOUS
     Route: 058
     Dates: start: 20030901
  2. CELECOXIB [Concomitant]
  3. METHOTREXATE [Concomitant]
  4. CALCIUM [Concomitant]
  5. MULTI-VITAMINS [Concomitant]
  6. RAMIPRIL [Concomitant]
  7. CO-DIOVAN [Concomitant]

REACTIONS (5)
  - BLOOD PRESSURE INCREASED [None]
  - COUGH [None]
  - FEELING ABNORMAL [None]
  - INSOMNIA [None]
  - VOMITING [None]
